FAERS Safety Report 21026107 (Version 1)
Quarter: 2022Q2

REPORT INFORMATION
  Report Type: Report from Study
  Country: US (occurrence: US)
  Receive Date: 20220630
  Receipt Date: 20220630
  Transmission Date: 20220721
  Serious: Yes (Hospitalization, Other)
  Sender: FDA-Public Use
  Company Number: US-ABBVIE-22K-163-4449124-00

PATIENT
  Age: 81 Year
  Sex: Male

DRUGS (2)
  1. DEPAKOTE [Suspect]
     Active Substance: DIVALPROEX SODIUM
     Indication: Antidepressant therapy
     Route: 048
  2. VALPROIC ACID [Suspect]
     Active Substance: VALPROIC ACID
     Indication: Antidepressant therapy
     Dosage: UNKNOWN
     Route: 048
     Dates: start: 202206

REACTIONS (14)
  - Unresponsive to stimuli [Recovering/Resolving]
  - Seizure [Unknown]
  - Dehydration [Recovering/Resolving]
  - Off label use [Unknown]
  - Condition aggravated [Not Recovered/Not Resolved]
  - COVID-19 [Recovering/Resolving]
  - Anticonvulsant drug level decreased [Recovered/Resolved]
  - Anticonvulsant drug level decreased [Unknown]
  - Agitation [Not Recovered/Not Resolved]
  - Anticonvulsant drug level decreased [Recovered/Resolved]
  - Anticonvulsant drug level decreased [Recovered/Resolved]
  - Aggression [Not Recovered/Not Resolved]
  - Lethargy [Not Recovered/Not Resolved]
  - Asthenia [Not Recovered/Not Resolved]

NARRATIVE: CASE EVENT DATE: 20220524
